FAERS Safety Report 4333566-0 (Version None)
Quarter: 2004Q1

REPORT INFORMATION
  Report Type: 
  Country: None (occurrence: None)
  Receive Date: 20040329
  Receipt Date: 20040213
  Transmission Date: 20041129
  Serious: No
  Sender: FDA-Public Use
  Company Number: 04P-163-0250222-00

PATIENT
  Age: 37 Year
  Sex: Female
  Weight: 158.759 kg

DRUGS (11)
  1. HUMIRA [Suspect]
     Indication: RHEUMATOID ARTHRITIS
     Dosage: 40 M G, 1 IN 2 WK, SUBCUTANEOUS
     Route: 058
     Dates: start: 20031001
  2. BUCINDOLOL HYDROCHLORIDE [Concomitant]
  3. FOLIC ACID [Concomitant]
  4. CYANOCOBALAMIN [Concomitant]
  5. VICODIN [Concomitant]
  6. POLYSACCHARIDE-IRON COMPLEX [Concomitant]
  7. CITRUCAL + D [Concomitant]
  8. METHOTREXATE SODIUM [Concomitant]
  9. ERGOCALCIFEROL [Concomitant]
  10. LEVOTHYROXINE SODIUM [Concomitant]
  11. ACETAMINOPHEN [Concomitant]

REACTIONS (1)
  - INJECTION SITE RASH [None]
